FAERS Safety Report 9508148 (Version 2)
Quarter: 2013Q3

REPORT INFORMATION
  Report Type: Spontaneous
  Country: US (occurrence: US)
  Receive Date: 20130909
  Receipt Date: 20130916
  Transmission Date: 20140515
  Serious: No
  Sender: FDA-Public Use
  Company Number: US-PFIZER INC-2013254710

PATIENT
  Age: 66 Year
  Sex: Female
  Weight: 79.37 kg

DRUGS (3)
  1. TOVIAZ [Suspect]
     Indication: URINARY INCONTINENCE
     Dosage: 8 MG, 1X/DAY
     Route: 048
     Dates: start: 201308
  2. CALCIUM/VITAMIN D3 [Concomitant]
     Indication: BONE DENSITY DECREASED
     Dosage: UNK
  3. VITAMIN D3 [Concomitant]

REACTIONS (4)
  - Drug effect incomplete [Unknown]
  - Sleep disorder [Unknown]
  - Drug ineffective [Not Recovered/Not Resolved]
  - Constipation [Unknown]
